FAERS Safety Report 6143565-4 (Version None)
Quarter: 2009Q2

REPORT INFORMATION
  Report Type: 
  Country: None (occurrence: None)
  Receive Date: 20090403
  Receipt Date: 20090322
  Transmission Date: 20091009
  Serious: Yes (Other)
  Sender: FDA-Public Use
  Company Number: US-PFIZER INC-2009188150

PATIENT
  Age: 21 Year
  Sex: Male
  Weight: 58.957 kg

DRUGS (1)
  1. VARENICLINE TARTRATE [Suspect]
     Indication: SMOKING CESSATION THERAPY
     Dosage: FREQUENCY: 2X/DAY, EVERY DAY;
     Dates: start: 20090301, end: 20090321

REACTIONS (4)
  - AGGRESSION [None]
  - FEELING ABNORMAL [None]
  - HANGOVER [None]
  - THINKING ABNORMAL [None]
